FAERS Safety Report 7400844-8 (Version None)
Quarter: 2011Q2

REPORT INFORMATION
  Report Type: 
  Country: None (occurrence: None)
  Receive Date: 20110407
  Receipt Date: 20110323
  Transmission Date: 20111010
  Serious: Yes (Other)
  Sender: FDA-Public Use
  Company Number: IE-CUBIST-2010S1001697

PATIENT
  Age: 71 Year
  Sex: Male
  Weight: 75 kg

DRUGS (1)
  1. CUBICIN [Suspect]
     Indication: SUBDIAPHRAGMATIC ABSCESS
     Route: 042
     Dates: start: 20100609, end: 20100630

REACTIONS (2)
  - EOSINOPHILIA [None]
  - ORGANISING PNEUMONIA [None]
